FAERS Safety Report 20983130 (Version 1)
Quarter: 2022Q2

REPORT INFORMATION
  Report Type: Spontaneous
  Country: US (occurrence: US)
  Receive Date: 20220620
  Receipt Date: 20220620
  Transmission Date: 20220721
  Serious: No
  Sender: FDA-Public Use
  Company Number: US-BRISTOL-MYERS SQUIBB COMPANY-2022-059375

PATIENT
  Age: 65 Year
  Sex: Female

DRUGS (1)
  1. REVLIMID [Suspect]
     Active Substance: LENALIDOMIDE
     Indication: Diffuse large B-cell lymphoma
     Dosage: FREQUENCY : TAKE 1 CAPSULE BY MOUTH DAILY FOR 7 DAYS AND 7 DAYS OFF AND REPEAT IN A 28 DAY CYCLE.
     Route: 048

REACTIONS (1)
  - Intentional product use issue [Unknown]
